FAERS Safety Report 23094557 (Version 1)
Quarter: 2023Q4

REPORT INFORMATION
  Report Type: Spontaneous
  Country: US (occurrence: US)
  Receive Date: 20231023
  Receipt Date: 20231023
  Transmission Date: 20240110
  Serious: No
  Sender: FDA-Public Use
  Company Number: US-BRISTOL-MYERS SQUIBB COMPANY-2023-150342

PATIENT

DRUGS (1)
  1. OPDIVO [Suspect]
     Active Substance: NIVOLUMAB
     Indication: Product used for unknown indication
     Dosage: ^IT WAS A 90 MG DOSE SO WE USED ONE 100 MG VIAL.

REACTIONS (1)
  - Wrong dosage formulation [Unknown]

NARRATIVE: CASE EVENT DATE: 20231013
